FAERS Safety Report 7164230-0 (Version None)
Quarter: 2010Q4

REPORT INFORMATION
  Report Type: 
  Country: None (occurrence: None)
  Receive Date: 20101123
  Receipt Date: 20100831
  Transmission Date: 20110411
  Serious: No
  Sender: FDA-Public Use
  Company Number: 8036099

PATIENT
  Sex: Male
  Weight: 115.5 kg

DRUGS (7)
  1. CIMZIA [Suspect]
     Indication: CROHN'S DISEASE
     Dosage: 400 MG, NR OF DOSES: 1 SUBCUTANEOUS, SUBCUTANEOUS
     Route: 058
     Dates: start: 20080807, end: 20080807
  2. CIMZIA [Suspect]
     Indication: CROHN'S DISEASE
     Dosage: 400 MG, NR OF DOSES: 1 SUBCUTANEOUS, SUBCUTANEOUS
     Route: 058
     Dates: end: 20090101
  3. METFORMIN [Concomitant]
  4. POTASSIUM [Concomitant]
  5. AVANDIA [Concomitant]
  6. ENALAPRIL [Concomitant]
  7. POTASSIUM PHOSPHATES [Concomitant]

REACTIONS (3)
  - NAUSEA [None]
  - PYREXIA [None]
  - VOMITING [None]
